FAERS Safety Report 5824909-7 (Version None)
Quarter: 2008Q3

REPORT INFORMATION
  Report Type: 
  Country: None (occurrence: None)
  Receive Date: 20080728
  Receipt Date: 20080718
  Transmission Date: 20090109
  Serious: Yes (Other)
  Sender: FDA-Public Use
  Company Number: FR-PFIZER INC-2008060758

PATIENT
  Age: 20 Year
  Sex: Female

DRUGS (1)
  1. SOLU-MEDROL [Suspect]

REACTIONS (3)
  - ANAPHYLACTIC REACTION [None]
  - SWELLING FACE [None]
  - URTICARIA [None]
